FAERS Safety Report 17440910 (Version 1)
Quarter: 2020Q1

REPORT INFORMATION
  Report Type: Spontaneous
  Country: DE (occurrence: DE)
  Receive Date: 20200220
  Receipt Date: 20200220
  Transmission Date: 20200409
  Serious: Yes (Other)
  Sender: FDA-Public Use
  Company Number: DE-MYLANLABS-2020M1018479

PATIENT
  Age: 6 Decade
  Sex: Female

DRUGS (4)
  1. CYCLOPHOSPHAMIDE. [Concomitant]
     Active Substance: CYCLOPHOSPHAMIDE
     Indication: LYMPHANGIOSARCOMA
     Dosage: ADJUVANT THERAPY
     Route: 048
  2. PREDNISOLONE. [Concomitant]
     Active Substance: PREDNISOLONE
     Indication: LYMPHANGIOSARCOMA
     Dosage: ADJUVANT THERAPY
     Route: 048
  3. PACLITAXEL. [Suspect]
     Active Substance: PACLITAXEL
     Indication: LYMPHANGIOSARCOMA
     Dosage: 80 MILLIGRAM/SQ. METER, QW
     Route: 065
     Dates: start: 201601
  4. MELPHALAN. [Suspect]
     Active Substance: MELPHALAN
     Indication: LYMPHANGIOSARCOMA
     Dosage: HYPERTHERMIC ISOLATED LIMB PERFUSION
     Route: 065
     Dates: start: 201607

REACTIONS (1)
  - Drug ineffective [Unknown]
